FAERS Safety Report 6693755-7 (Version None)
Quarter: 2010Q2

REPORT INFORMATION
  Report Type: 
  Country: None (occurrence: None)
  Receive Date: 20100423
  Receipt Date: 20091103
  Transmission Date: 20101027
  Serious: No
  Sender: FDA-Public Use
  Company Number: A0810952A

PATIENT
  Age: 71 Year
  Sex: Female

DRUGS (7)
  1. DEXEDRINE [Suspect]
     Indication: ATTENTION DEFICIT/HYPERACTIVITY DISORDER
     Dosage: 5MG VARIABLE DOSE
     Route: 048
     Dates: start: 19720101
  2. OSCAL [Concomitant]
  3. ASPIRIN [Concomitant]
  4. PEPCID [Concomitant]
  5. VITAMIN E [Concomitant]
  6. VITAMIN B-12 [Concomitant]
  7. VITAMIN B6 [Concomitant]

REACTIONS (2)
  - DRUG INEFFECTIVE [None]
  - PRODUCT QUALITY ISSUE [None]
